FAERS Safety Report 13121801 (Version 1)
Quarter: 2017Q1

REPORT INFORMATION
  Report Type: Spontaneous
  Country: US (occurrence: US)
  Receive Date: 20170117
  Receipt Date: 20170117
  Transmission Date: 20170428
  Serious: Yes (Other)
  Sender: FDA-Public Use
  Company Number: None

PATIENT
  Age: 60 Year
  Sex: Female

DRUGS (1)
  1. XIIDRA [Suspect]
     Active Substance: LIFITEGRAST
     Indication: DRY EYE
     Dosage: ROUTE - TOP (TOPICAL OPTHALMIC)
     Route: 061
     Dates: start: 20161110, end: 20161123

REACTIONS (3)
  - Erythema of eyelid [None]
  - Ocular hyperaemia [None]
  - Dyspnoea [None]

NARRATIVE: CASE EVENT DATE: 20161124
